FAERS Safety Report 8440230-5 (Version None)
Quarter: 2012Q2

REPORT INFORMATION
  Report Type: 
  Country: None (occurrence: None)
  Receive Date: 20120615
  Receipt Date: 20120605
  Transmission Date: 20120825
  Serious: Yes (Other)
  Sender: FDA-Public Use
  Company Number: US-ABBOTT-12P-163-0940381-00

PATIENT
  Age: 50 Year
  Sex: Female

DRUGS (14)
  1. NAPROXEN [Concomitant]
     Indication: HEADACHE
     Route: 048
  2. LAMOTRIGINE [Concomitant]
     Indication: CONVULSION
     Route: 048
  3. COLESTIPOL HYDROCHLORIDE [Concomitant]
     Indication: UNDERWEIGHT
     Route: 048
  4. ENTOCORT EC [Concomitant]
     Indication: PRODUCT USED FOR UNKNOWN INDICATION
  5. BALSALAZIDE DISODIUM [Concomitant]
     Indication: UNDERWEIGHT
     Route: 048
  6. HYDROXYZINE [Concomitant]
     Indication: PRURITUS
     Route: 048
  7. PAXIL [Concomitant]
     Indication: ANXIETY
     Route: 048
  8. BELLADONNA AND PHENOBARBITAL [Concomitant]
     Indication: CONVULSION
     Dosage: 4 TIMES A DAY AS NEEDED
     Route: 048
  9. TEMAZEPAM [Concomitant]
     Indication: INSOMNIA
     Dosage: AT BEDTIME
     Route: 048
  10. HUMIRA [Suspect]
     Indication: CROHN'S DISEASE
     Dosage: 160 MG LOADING DOSE
     Dates: start: 20120522
  11. TOPAMAX [Concomitant]
     Indication: CONVULSION
     Route: 048
  12. BUDESONIDE [Concomitant]
     Indication: UNDERWEIGHT
     Dosage: 3 MG DAILY
     Route: 048
  13. XANAX [Concomitant]
     Indication: ANXIETY
     Dosage: ^GO TO PILL^ AS NEEDED
     Route: 048
  14. ANTI-DIARRHEA PILL [Concomitant]
     Indication: DIARRHOEA
     Route: 048

REACTIONS (6)
  - MYALGIA [None]
  - RASH [None]
  - VOMITING [None]
  - FEELING HOT [None]
  - CONVULSION [None]
  - CHILLS [None]
